FAERS Safety Report 12683399 (Version 2)
Quarter: 2016Q3

REPORT INFORMATION
  Report Type: Spontaneous
  Country: US (occurrence: US)
  Receive Date: 20160825
  Receipt Date: 20160915
  Transmission Date: 20161109
  Serious: No
  Sender: FDA-Public Use
  Company Number: US-PFIZER INC-2016398456

PATIENT
  Age: 52 Year
  Sex: Female

DRUGS (3)
  1. CELEBREX [Suspect]
     Active Substance: CELECOXIB
     Indication: FIBROMYALGIA
     Dosage: 50 MG, 2X/DAY
     Dates: start: 201608, end: 201608
  2. ULTRAM [Concomitant]
     Active Substance: TRAMADOL HYDROCHLORIDE
     Dosage: 50 MG, UNK (1-2/ DAY)
  3. PRILOSEC [Concomitant]
     Active Substance: OMEPRAZOLE MAGNESIUM
     Dosage: UNK

REACTIONS (6)
  - Drug intolerance [Unknown]
  - Nervousness [Unknown]
  - Drug ineffective [Unknown]
  - Feeling abnormal [Unknown]
  - Product use issue [Unknown]
  - Somnolence [Unknown]

NARRATIVE: CASE EVENT DATE: 201608
